FAERS Safety Report 18576468 (Version 7)
Quarter: 2023Q4

REPORT INFORMATION
  Report Type: Spontaneous
  Country: US (occurrence: US)
  Receive Date: 20201203
  Receipt Date: 20231228
  Transmission Date: 20240109
  Serious: No
  Sender: FDA-Public Use
  Company Number: US-PFIZER INC-2020324529

PATIENT
  Age: 65 Year
  Sex: Male

DRUGS (5)
  1. MEKTOVI [Suspect]
     Active Substance: BINIMETINIB
     Indication: Pancreatic carcinoma
     Dosage: 45 MG, 1X/DAY FOR 21 DAYS (TAKE 3 TABLETS BY MOUTH ONCE DAILY)
     Route: 048
  2. MEKTOVI [Suspect]
     Active Substance: BINIMETINIB
     Dosage: 15 MG
  3. BRAFTOVI [Suspect]
     Active Substance: ENCORAFENIB
     Indication: Pancreatic carcinoma
     Dosage: 450 MG, 1X/DAY FOR 21 DAYS
     Route: 048
  4. BRAFTOVI [Suspect]
     Active Substance: ENCORAFENIB
     Dosage: 75 MG
  5. BRAFTOVI [Suspect]
     Active Substance: ENCORAFENIB
     Dosage: 450 MG, DAILY
     Route: 048

REACTIONS (3)
  - Fatigue [Unknown]
  - Loss of personal independence in daily activities [Unknown]
  - Off label use [Unknown]
